FAERS Safety Report 20833685 (Version 1)
Quarter: 2022Q2

REPORT INFORMATION
  Report Type: 
  Country: None (occurrence: None)
  Receive Date: 20220516
  Receipt Date: 20220516
  Transmission Date: 20220721
  Serious: No
  Sender: FDA-Public Use
  Company Number: ROCHE-3092045

PATIENT

DRUGS (7)
  1. OCRELIZUMAB [Suspect]
     Active Substance: OCRELIZUMAB
     Dates: start: 20190327, end: 20190409
  2. OCRELIZUMAB [Suspect]
     Active Substance: OCRELIZUMAB
     Dates: start: 20190904, end: 20190904
  3. OCRELIZUMAB [Suspect]
     Active Substance: OCRELIZUMAB
     Dates: start: 20191024
  4. OCRELIZUMAB [Suspect]
     Active Substance: OCRELIZUMAB
     Dosage: MOST RECENT DOSE PRIOR TO AE 27/MAR/2019
     Dates: start: 20190327
  5. COMIRNATY [Concomitant]
     Active Substance: TOZINAMERAN
     Dates: start: 20210425, end: 20210425
  6. COMIRNATY [Concomitant]
     Active Substance: TOZINAMERAN
     Dates: start: 20210609, end: 20210609
  7. CHOLECALCIFEROL [Concomitant]
     Active Substance: CHOLECALCIFEROL

REACTIONS (2)
  - Vaccination failure [None]
  - COVID-19 [None]

NARRATIVE: CASE EVENT DATE: 20211210
